FAERS Safety Report 4578655-0 (Version None)
Quarter: 2005Q1

REPORT INFORMATION
  Report Type: 
  Country: None (occurrence: None)
  Receive Date: 20050209
  Receipt Date: 20050209
  Transmission Date: 20050727
  Serious: Yes (Other)
  Sender: FDA-Public Use
  Company Number: None

PATIENT
  Sex: Female

DRUGS (1)
  1. NEXIUM [Suspect]
     Dosage: 40 MG   ONCE DAILY   ORAL
     Route: 048
     Dates: start: 20050106, end: 20050201

REACTIONS (3)
  - FEELING HOT [None]
  - VISION BLURRED [None]
  - VISUAL ACUITY REDUCED [None]
